FAERS Safety Report 26174865 (Version 1)
Quarter: 2025Q4

REPORT INFORMATION
  Report Type: Spontaneous
  Country: US (occurrence: None)
  Receive Date: 20251217
  Receipt Date: 20251217
  Transmission Date: 20260118
  Serious: Yes (Other)
  Sender: FDA-CTU
  Company Number: None

PATIENT
  Age: 78 Year
  Sex: Male
  Weight: 101.25 kg

DRUGS (11)
  1. TAMSULOSIN HYDROCHLORIDE [Suspect]
     Active Substance: TAMSULOSIN HYDROCHLORIDE
     Indication: Dysuria
     Dosage: OTHER QUANTITY : 1 CAPSULE(S);?OTHER FREQUENCY : WITH EVENING MEAL;
     Route: 048
     Dates: start: 20251109, end: 20251209
  2. LISINOPRIL [Concomitant]
     Active Substance: LISINOPRIL
  3. ATORVASTATIN [Concomitant]
     Active Substance: ATORVASTATIN
  4. METFORMIN [Concomitant]
     Active Substance: METFORMIN HYDROCHLORIDE
  5. tirzepitide (Mounjaro) [Concomitant]
  6. THYROXINE [Concomitant]
     Active Substance: LEVOTHYROXINE
  7. ASPIRIN [Concomitant]
     Active Substance: ASPIRIN
  8. VITAMINS [Concomitant]
     Active Substance: VITAMINS
  9. VITAMIN K [Concomitant]
     Active Substance: PHYTONADIONE
  10. VITAMIN B12 [Concomitant]
     Active Substance: CYANOCOBALAMIN
  11. coenzymeQ10 [Concomitant]

REACTIONS (4)
  - Epistaxis [None]
  - Pharyngeal haemorrhage [None]
  - Mouth haemorrhage [None]
  - Therapy cessation [None]

NARRATIVE: CASE EVENT DATE: 20251204
